FAERS Safety Report 9317995 (Version 1)
Quarter: 2013Q2

REPORT INFORMATION
  Report Type: Spontaneous
  Country: US (occurrence: US)
  Receive Date: 20130530
  Receipt Date: 20130530
  Transmission Date: 20140414
  Serious: No
  Sender: FDA-Public Use
  Company Number: US-GLAXOSMITHKLINE-A0999748A

PATIENT
  Age: 75 Year
  Sex: Female

DRUGS (10)
  1. VENTOLIN [Suspect]
     Indication: PRODUCT USED FOR UNKNOWN INDICATION
     Route: 055
  2. ADVAIR [Suspect]
     Indication: ASTHMA
     Route: 055
  3. ELAVIL [Concomitant]
  4. LORAZEPAM [Concomitant]
  5. DEPAKOTE [Concomitant]
  6. NEXIUM [Concomitant]
  7. VICODIN [Concomitant]
  8. ADVAIR [Concomitant]
  9. KEPPRA [Concomitant]
  10. NEURONTIN [Concomitant]

REACTIONS (4)
  - Dizziness [Recovered/Resolved]
  - Dizziness [Recovered/Resolved]
  - Product quality issue [Unknown]
  - Drug ineffective [Unknown]
